FAERS Safety Report 16886742 (Version 2)
Quarter: 2019Q4

REPORT INFORMATION
  Report Type: Spontaneous
  Country: US (occurrence: US)
  Receive Date: 20191004
  Receipt Date: 20191016
  Transmission Date: 20200122
  Serious: No
  Sender: FDA-Public Use
  Company Number: US-ASTRAZENECA-2019SF37951

PATIENT
  Sex: Male

DRUGS (1)
  1. BYDUREON BCISE [Suspect]
     Active Substance: EXENATIDE
     Dosage: UNKNOWN
     Route: 058

REACTIONS (6)
  - Blood glucose decreased [Unknown]
  - Incorrect dose administered [Unknown]
  - Device defective [Unknown]
  - Needle issue [Unknown]
  - Dizziness [Unknown]
  - Device leakage [Unknown]
